FAERS Safety Report 9236722 (Version 3)
Quarter: 2013Q4

REPORT INFORMATION
  Report Type: Spontaneous
  Country: GB (occurrence: GB)
  Receive Date: 20130417
  Receipt Date: 20131029
  Transmission Date: 20140711
  Serious: Yes (Hospitalization, Other)
  Sender: FDA-Public Use
  Company Number: GB-ROCHE-1214414

PATIENT
  Sex: Female

DRUGS (1)
  1. LUCENTIS [Suspect]
     Indication: PRODUCT USED FOR UNKNOWN INDICATION
     Route: 050

REACTIONS (9)
  - Cerebrovascular accident [Unknown]
  - Age-related macular degeneration [Unknown]
  - Cerebral small vessel ischaemic disease [Not Recovered/Not Resolved]
  - Cardiac arrest [Recovered/Resolved]
  - Affect lability [Recovered/Resolved]
  - Cerebral infarction [Recovered/Resolved]
  - Cerebellar infarction [Unknown]
  - Cerebral infarction [Recovered/Resolved]
  - Inappropriate affect [Recovered/Resolved]
